FAERS Safety Report 15604570 (Version 1)
Quarter: 2018Q4

REPORT INFORMATION
  Report Type: Report from Study
  Country: NL (occurrence: NL)
  Receive Date: 20181110
  Receipt Date: 20181110
  Transmission Date: 20190205
  Serious: Yes (Hospitalization)
  Sender: FDA-Public Use
  Company Number: PHHY2017NL111830

PATIENT
  Age: 68 Year
  Sex: Male

DRUGS (3)
  1. SANDOSTATINE LAR [Suspect]
     Active Substance: OCTREOTIDE ACETATE
     Indication: NEUROENDOCRINE TUMOUR
     Dosage: 30MG/2ML, TIW (ONCE EVERY 3 WEEKS)
     Route: 030
     Dates: start: 20140108
  2. SANDOSTATINE LAR [Suspect]
     Active Substance: OCTREOTIDE ACETATE
     Dosage: 30MG/2ML, TIW (ONCE EVERY 3 WEEKS)
     Route: 030
  3. OCTREOTIDE. [Suspect]
     Active Substance: OCTREOTIDE
     Indication: PRODUCT USED FOR UNKNOWN INDICATION
     Dosage: UNK UNK, TID (3 TIMES DAILY)
     Route: 065
     Dates: start: 20141112

REACTIONS (3)
  - Inappropriate schedule of product administration [Unknown]
  - Abdominal abscess [Not Recovered/Not Resolved]
  - Abscess [Unknown]

NARRATIVE: CASE EVENT DATE: 20170727
